FAERS Safety Report 8574170-8 (Version None)
Quarter: 2012Q3

REPORT INFORMATION
  Report Type: 
  Country: None (occurrence: None)
  Receive Date: 20120806
  Receipt Date: 20110810
  Transmission Date: 20120928
  Serious: Yes (Hospitalization)
  Sender: FDA-Public Use
  Company Number: DE-CELGENEUS-062-21880-12053255

PATIENT
  Sex: Female
  Weight: 62 kg

DRUGS (4)
  1. DEXAMETHASONE [Concomitant]
     Indication: MULTIPLE MYELOMA
     Route: 065
     Dates: start: 20110104, end: 20110425
  2. REVLIMID [Suspect]
     Indication: MULTIPLE MYELOMA
     Dosage: 25 MILLIGRAM
     Route: 048
     Dates: start: 20110104, end: 20110425
  3. IMMUNE GLOBULIN NOS [Concomitant]
     Route: 065
  4. RED BLOOD CELLS [Concomitant]
     Route: 065

REACTIONS (9)
  - GENERAL PHYSICAL HEALTH DETERIORATION [None]
  - THROMBOCYTOPENIA [None]
  - GRANULOCYTOPENIA [None]
  - LEUKOPENIA [None]
  - PYREXIA [None]
  - CONVULSION [None]
  - ANAEMIA [None]
  - URINARY TRACT INFECTION [None]
  - DECREASED APPETITE [None]
